FAERS Safety Report 12342241 (Version 1)
Quarter: 2016Q2

REPORT INFORMATION
  Report Type: Spontaneous
  Country: JP (occurrence: JP)
  Receive Date: 20160506
  Receipt Date: 20160506
  Transmission Date: 20160815
  Serious: Yes (Hospitalization, Other)
  Sender: FDA-Public Use
  Company Number: JP-BAYER-2016-082167

PATIENT
  Sex: Male

DRUGS (3)
  1. ACETYLSALICYLIC ACID({=100 MG) [Suspect]
     Active Substance: ASPIRIN
     Indication: CEREBRAL ARTERY EMBOLISM
     Dosage: UNK
     Route: 048
     Dates: start: 1989
  2. TICLOPIDINE HYDROCHLORIDE. [Interacting]
     Active Substance: TICLOPIDINE HYDROCHLORIDE
     Indication: CEREBRAL ARTERY EMBOLISM
     Dosage: UNK
     Route: 048
     Dates: start: 1989
  3. WARFARIN POTASSIUM [Interacting]
     Active Substance: WARFARIN POTASSIUM
     Dosage: UNK
     Route: 048
     Dates: start: 201010

REACTIONS (4)
  - Gastric ulcer [None]
  - Shock [None]
  - Labelled drug-drug interaction medication error [None]
  - Faeces discoloured [None]

NARRATIVE: CASE EVENT DATE: 201306
